FAERS Safety Report 7357452 (Version 3)
Quarter: 2020Q3

REPORT INFORMATION
  Report Type: Report from Study
  Country: US (occurrence: US)
  Receive Date: 20100416
  Receipt Date: 20100605
  Transmission Date: 20201104
  Serious: Yes (Death)
  Sender: FDA-Public Use
  Company Number: US-ROCHE-697429

PATIENT

DRUGS (1)
  1. IBANDRONIC ACID. [Suspect]
     Active Substance: IBANDRONIC ACID
     Indication: BONE DENSITY DECREASED
     Dosage: FORM: PILL
     Route: 065
     Dates: start: 2000, end: 200612

REACTIONS (1)
  - Pneumonia [Fatal]
